FAERS Safety Report 19056315 (Version 1)
Quarter: 2021Q1

REPORT INFORMATION
  Report Type: Spontaneous
  Country: NL (occurrence: NL)
  Receive Date: 20210325
  Receipt Date: 20210325
  Transmission Date: 20210420
  Serious: Yes (Other)
  Sender: FDA-Public Use
  Company Number: NL-MYLANLABS-2021M1015196

PATIENT
  Sex: Male
  Weight: 105 kg

DRUGS (5)
  1. ALLOPURINOL. [Suspect]
     Active Substance: ALLOPURINOL
     Indication: GOUT
     Dosage: 100 MILLIGRAM, QD,1X DAAGS 1 TABLET
     Dates: start: 20201204
  2. ACENOCOUMAROL [Concomitant]
     Active Substance: ACENOCOUMAROL
     Dosage: UNK (TABLET, 1 MG (MILLIGRAM))
  3. LOSARTAN. [Concomitant]
     Active Substance: LOSARTAN
     Dosage: UNK (FILM?COATED TABLET, 50 MG (MILLIGRAM))
  4. FLUTICASON [Concomitant]
     Active Substance: FLUTICASONE
     Dosage: UNK (CREME, 0,5 MG/G (MILLIGRAM PER GRAM))
  5. BUMETANIDE. [Concomitant]
     Active Substance: BUMETANIDE
     Dosage: UNK (TABLET, 2 MG (MILLIGRAM))

REACTIONS (2)
  - Hypothermia [Not Recovered/Not Resolved]
  - Poor quality sleep [Not Recovered/Not Resolved]
